FAERS Safety Report 7328218-9 (Version None)
Quarter: 2011Q1

REPORT INFORMATION
  Report Type: 
  Country: None (occurrence: None)
  Receive Date: 20110222
  Receipt Date: 20110209
  Transmission Date: 20110831
  Serious: Yes (Hospitalization)
  Sender: FDA-Public Use
  Company Number: 20110009

PATIENT
  Age: 45 Year
  Sex: Male

DRUGS (2)
  1. DEXAMETHASONE SODIUM PHOSPHATE [Suspect]
     Indication: PLANTAR FASCIITIS
     Dosage: INJECTION NOS
     Dates: start: 20101116
  2. DEXAMETHASONE SODIUM PHOSPHATE [Suspect]
     Indication: PLANTAR FASCIITIS
     Dosage: 0.25 CC INJECTIONS NOS
     Dates: start: 20101116

REACTIONS (1)
  - INJECTION SITE INFECTION [None]
